FAERS Safety Report 17733402 (Version 4)
Quarter: 2020Q3

REPORT INFORMATION
  Report Type: Spontaneous
  Country: FR (occurrence: FR)
  Receive Date: 20200501
  Receipt Date: 20200903
  Transmission Date: 20201102
  Serious: Yes (Hospitalization, Other)
  Sender: FDA-Public Use
  Company Number: NVSC2020FR117858

PATIENT
  Age: 71 Year
  Sex: Male

DRUGS (15)
  1. VENETOCLAX. [Suspect]
     Active Substance: VENETOCLAX
     Dosage: 200 MG
     Route: 065
  2. VALPROMIDE [Interacting]
     Active Substance: VALPROMIDE
     Indication: CHRONIC LYMPHOCYTIC LEUKAEMIA
     Dosage: UNK
     Route: 065
  3. RITUXIMAB. [Suspect]
     Active Substance: RITUXIMAB
     Indication: CHRONIC LYMPHOCYTIC LEUKAEMIA RECURRENT
     Dosage: 375 MG/M2 (WEEK 5 9 13 17 21)
     Route: 065
  4. VENETOCLAX. [Suspect]
     Active Substance: VENETOCLAX
     Indication: CHRONIC LYMPHOCYTIC LEUKAEMIA
     Dosage: 50 MG
     Route: 065
  5. METHOTREXATE. [Suspect]
     Active Substance: METHOTREXATE
     Dosage: HIGH?DOSE 2G/M2
     Route: 042
  6. VENETOCLAX. [Suspect]
     Active Substance: VENETOCLAX
     Dosage: 100 MG
     Route: 065
  7. VENETOCLAX. [Suspect]
     Active Substance: VENETOCLAX
     Dosage: 20 MG
     Route: 065
  8. RITUXIMAB. [Suspect]
     Active Substance: RITUXIMAB
     Dosage: 375 MG/M2 DAY 1 OF THE FIRST CYCLE, THEN 500MG/M2 DAY 1 OF THE SECOND CYCLE (WEEK 1)
     Route: 065
  9. LEVETIRACETAM. [Interacting]
     Active Substance: LEVETIRACETAM
     Indication: CHRONIC LYMPHOCYTIC LEUKAEMIA
     Dosage: UNK
     Route: 065
  10. PREDNISONE. [Suspect]
     Active Substance: PREDNISONE
     Indication: CHRONIC LYMPHOCYTIC LEUKAEMIA RECURRENT
     Dosage: 0.5 MG/KG
     Route: 048
  11. METHOTREXATE. [Suspect]
     Active Substance: METHOTREXATE
     Indication: CHRONIC LYMPHOCYTIC LEUKAEMIA
     Dosage: 2000 MG/M2
     Route: 065
  12. LACOSAMIDE. [Interacting]
     Active Substance: LACOSAMIDE
     Indication: CHRONIC LYMPHOCYTIC LEUKAEMIA
     Dosage: UNK
     Route: 065
  13. METHOTREXATE. [Suspect]
     Active Substance: METHOTREXATE
     Dosage: 2000 MG/M2
     Route: 042
  14. VENETOCLAX. [Suspect]
     Active Substance: VENETOCLAX
     Dosage: 50 MG QD DAY 5
     Route: 048
  15. IBRUTINIB [Suspect]
     Active Substance: IBRUTINIB
     Indication: CHRONIC LYMPHOCYTIC LEUKAEMIA
     Dosage: 420 MG, DAILY
     Route: 065
     Dates: start: 201606

REACTIONS (6)
  - Chronic lymphocytic leukaemia recurrent [Unknown]
  - Neutropenia [Unknown]
  - Drug interaction [Unknown]
  - Therapeutic product effect incomplete [Unknown]
  - Neurological symptom [Recovered/Resolved with Sequelae]
  - Chronic lymphocytic leukaemia [Unknown]
